FAERS Safety Report 8177239-5 (Version None)
Quarter: 2012Q1

REPORT INFORMATION
  Report Type: 
  Country: None (occurrence: None)
  Receive Date: 20120301
  Receipt Date: 20120223
  Transmission Date: 20120608
  Serious: Yes (Death, Other)
  Sender: FDA-Public Use
  Company Number: US-BAYER-2012-019064

PATIENT
  Age: 83 Year
  Sex: Male
  Weight: 91.156 kg

DRUGS (17)
  1. PROTONIX [Concomitant]
     Dosage: 20 MG, DAILY
  2. SOLU-MEDROL [Concomitant]
     Dosage: 1 G, UNK
  3. LASIX [Concomitant]
     Dosage: 20 MG, UNK
  4. MANNITOL [Concomitant]
     Dosage: 25 G, UNK
  5. ZOCOR [Concomitant]
     Dosage: 20 MG, DAILY
  6. INSULIN [Concomitant]
     Dosage: 30 U, UNK
  7. HEPARIN [Concomitant]
     Dosage: 10000 U, UNK
  8. LISINOPRIL [Concomitant]
     Dosage: 20 MG, DAILY
  9. VICODIN [Concomitant]
     Dosage: AS NEEDED
  10. RED BLOOD CELLS [Concomitant]
     Dosage: 2 U, UNK
     Route: 042
     Dates: start: 20060509, end: 20060509
  11. TRASYLOL [Suspect]
     Indication: CORONARY ARTERY BYPASS
     Dosage: 2,000,000 UNITS APROTININ
     Route: 042
     Dates: start: 20060509
  12. GLIPIZIDE [Concomitant]
     Dosage: 10 MG, BID
  13. ESMOLOL HCL [Concomitant]
     Dosage: 200 MG, UNK
  14. HYTRIN [Concomitant]
     Dosage: 2 MG, AT BED TIME
  15. METOPROLOL SUCCINATE [Concomitant]
     Dosage: 25 MG, BID
  16. MANNITOL [Concomitant]
     Dosage: 12.5 GM
  17. CARDIOPLEGIA [Concomitant]

REACTIONS (5)
  - THROMBOCYTOPENIA [None]
  - CONTINUOUS HAEMODIAFILTRATION [None]
  - BLOOD CREATININE INCREASED [None]
  - CORONARY ARTERY DISEASE [None]
  - CARDIAC ARREST [None]
